FAERS Safety Report 17473320 (Version 1)
Quarter: 2020Q1

REPORT INFORMATION
  Report Type: Spontaneous
  Country: US (occurrence: US)
  Receive Date: 20200228
  Receipt Date: 20200228
  Transmission Date: 20200409
  Serious: Yes (Death, Other)
  Sender: FDA-Public Use
  Company Number: US-SPECGX-T202000485

PATIENT
  Age: 61 Year
  Sex: Male

DRUGS (2)
  1. LACTATED RINGERS SOLUTION [Concomitant]
     Active Substance: CALCIUM CHLORIDE\POTASSIUM CHLORIDE\SODIUM CHLORIDE\SODIUM LACTATE
     Indication: PRODUCT USED FOR UNKNOWN INDICATION
     Dosage: UNK
     Route: 065
  2. HYDROMORPHONE [Suspect]
     Active Substance: HYDROMORPHONE
     Indication: PRODUCT USED FOR UNKNOWN INDICATION
     Dosage: UNK
     Route: 065

REACTIONS (6)
  - Condition aggravated [Fatal]
  - Acute respiratory distress syndrome [Unknown]
  - Small cell lung cancer metastatic [Fatal]
  - Pancreatitis haemorrhagic [Fatal]
  - Cardiopulmonary failure [Fatal]
  - Pneumonia [Unknown]
